FAERS Safety Report 8532959-5 (Version None)
Quarter: 2012Q3

REPORT INFORMATION
  Report Type: 
  Country: None (occurrence: None)
  Receive Date: 20120724
  Receipt Date: 20120716
  Transmission Date: 20120928
  Serious: Yes (Other)
  Sender: FDA-Public Use
  Company Number: US-JNJFOC-20120412153

PATIENT
  Sex: Female
  Weight: 64.41 kg

DRUGS (18)
  1. NORCO [Concomitant]
     Dosage: 10MG-325MG
     Route: 048
  2. NORCO [Concomitant]
     Indication: PAIN
     Dosage: 5 MG- 325 MG
     Route: 048
  3. ELAVIL [Concomitant]
     Route: 065
  4. COLACE [Concomitant]
     Route: 048
  5. ASPIRIN [Concomitant]
     Route: 048
  6. MAGNESIUM OXIDE [Concomitant]
     Route: 048
  7. AMITRIPTYLINE HCL [Concomitant]
     Route: 048
  8. KLOR-CON [Concomitant]
     Dosage: WITH FOOD
     Route: 048
  9. PEPCID AC [Concomitant]
     Dosage: AS NEEEDED
     Route: 048
  10. REMICADE [Suspect]
     Indication: RHEUMATOID ARTHRITIS
     Route: 042
  11. DIOVAN [Concomitant]
     Route: 048
  12. PREDNISONE [Concomitant]
     Dosage: 0.5MG/KG
     Route: 048
  13. TRAMADOL HCL [Concomitant]
     Dosage: AS NEEDED
     Route: 048
  14. AVAPRO [Concomitant]
     Route: 048
  15. DOXYCYCLINE HYCLATE [Concomitant]
     Route: 065
  16. NEURONTIN [Concomitant]
     Route: 048
  17. MULTI-VITAMINS [Concomitant]
     Dosage: WITH FOOD
     Route: 048
  18. FUROSEMIDE [Concomitant]
     Route: 048

REACTIONS (16)
  - PAIN [None]
  - HEADACHE [None]
  - CONTUSION [None]
  - JOINT DISLOCATION [None]
  - SPINAL OSTEOARTHRITIS [None]
  - OSTEOARTHRITIS [None]
  - ROTATOR CUFF SYNDROME [None]
  - SPONDYLOLISTHESIS [None]
  - NEURALGIA [None]
  - OEDEMA PERIPHERAL [None]
  - TEMPERATURE INTOLERANCE [None]
  - URINARY INCONTINENCE [None]
  - WEIGHT DECREASED [None]
  - RASH [None]
  - INTERVERTEBRAL DISC DEGENERATION [None]
  - MALAISE [None]
